FAERS Safety Report 6023897-0 (Version None)
Quarter: 2008Q4

REPORT INFORMATION
  Report Type: 
  Country: None (occurrence: None)
  Receive Date: 20081230
  Receipt Date: 20081218
  Transmission Date: 20090506
  Serious: Yes (Death, Life-Threatening, Other)
  Sender: FDA-Public Use
  Company Number: JP-PFIZER INC-2008069090

PATIENT

DRUGS (4)
  1. ZYVOX [Suspect]
     Indication: POSTOPERATIVE WOUND INFECTION
     Dosage: 600 MG, 2X/DAY
     Route: 048
     Dates: start: 20080702, end: 20080827
  2. ZYVOX [Suspect]
     Dosage: 600 MG, 2X/DAY
     Route: 042
     Dates: start: 20080828, end: 20080829
  3. VANCOMYCIN [Concomitant]
     Indication: WOUND INFECTION
     Dosage: 1.0 G, 2X/DAY
     Route: 042
     Dates: start: 20080616, end: 20080629
  4. VANCOMYCIN [Concomitant]
     Dosage: 0.5 G, 2X/DAY
     Route: 042
     Dates: start: 20080630, end: 20080701

REACTIONS (4)
  - CARDIO-RESPIRATORY ARREST [None]
  - DEATH [None]
  - PANCYTOPENIA [None]
  - PNEUMONIA ASPIRATION [None]
